FAERS Safety Report 17369705 (Version 2)
Quarter: 2020Q1

REPORT INFORMATION
  Report Type: Spontaneous
  Country: US (occurrence: US)
  Receive Date: 20200205
  Receipt Date: 20200218
  Transmission Date: 20200409
  Serious: No
  Sender: FDA-Public Use
  Company Number: NVSC2020US026947

PATIENT
  Age: 61 Year
  Sex: Female

DRUGS (2)
  1. TYKERB [Suspect]
     Active Substance: LAPATINIB DITOSYLATE
     Indication: BREAST CANCER
     Dosage: 750 UNK
     Route: 048
     Dates: start: 20200118
  2. TYKERB [Suspect]
     Active Substance: LAPATINIB DITOSYLATE
     Indication: UTERINE CANCER
     Dosage: 750 MG, QD
     Route: 048
     Dates: start: 201911

REACTIONS (5)
  - Gastrointestinal disorder [Recovered/Resolved]
  - Cough [Not Recovered/Not Resolved]
  - Nasopharyngitis [Not Recovered/Not Resolved]
  - Nausea [Recovered/Resolved]
  - Hot flush [Recovered/Resolved]

NARRATIVE: CASE EVENT DATE: 202001
